FAERS Safety Report 4608604-8 (Version None)
Quarter: 2005Q1

REPORT INFORMATION
  Report Type: 
  Country: None (occurrence: None)
  Receive Date: 20050315
  Receipt Date: 20050215
  Transmission Date: 20050727
  Serious: Yes (Hospitalization)
  Sender: FDA-Public Use
  Company Number: PHEH2005US02090

PATIENT
  Age: 3 Year
  Sex: Female

DRUGS (4)
  1. PROTOPIC [Suspect]
     Indication: ECZEMA
     Dosage: UNK, BID
     Dates: start: 20030909
  2. ELIDEL [Suspect]
     Dosage: UNK, PRN
     Route: 061
     Dates: start: 20040818
  3. ELOCON [Concomitant]
     Indication: ECZEMA
     Dosage: UNK, BID
     Dates: start: 20030909
  4. LIPOCREAM [Concomitant]
     Dosage: UNK, BID
     Dates: start: 20030909

REACTIONS (10)
  - ABDOMINAL MASS [None]
  - ANOREXIA [None]
  - CONSTIPATION [None]
  - DIFFUSE LARGE B-CELL LYMPHOMA [None]
  - HEPATIC LESION [None]
  - HEPATIC NEOPLASM [None]
  - INTUSSUSCEPTION [None]
  - RENAL NEOPLASM [None]
  - SMALL INTESTINAL RESECTION [None]
  - SMALL INTESTINE CARCINOMA [None]
